FAERS Safety Report 6422180-9 (Version None)
Quarter: 2009Q4

REPORT INFORMATION
  Report Type: 
  Country: None (occurrence: None)
  Receive Date: 20091030
  Receipt Date: 20091019
  Transmission Date: 20100525
  Serious: Yes (Hospitalization)
  Sender: FDA-Public Use
  Company Number: PHHY2009CA45258

PATIENT
  Sex: Female

DRUGS (2)
  1. DIOVAN [Suspect]
     Dosage: 1 TABLET DAILY
     Route: 048
  2. WARFARIN SODIUM [Concomitant]
     Dosage: UNK

REACTIONS (2)
  - INTESTINAL OBSTRUCTION [None]
  - INTESTINAL RESECTION [None]
